FAERS Safety Report 24664719 (Version 2)
Quarter: 2025Q1

REPORT INFORMATION
  Report Type: Report from Study
  Country: CO (occurrence: CO)
  Receive Date: 20241126
  Receipt Date: 20250131
  Transmission Date: 20250408
  Serious: Yes (Other)
  Sender: ROCHE
  Company Number: CO-002147023-NVSC2024CO224012

PATIENT
  Age: 31 Year
  Sex: Male
  Weight: 76 kg

DRUGS (2)
  1. XOLAIR [Suspect]
     Active Substance: OMALIZUMAB
     Indication: Asthma
     Route: 058
     Dates: start: 20170415, end: 20240607
  2. XOLAIR [Suspect]
     Active Substance: OMALIZUMAB
     Dosage: 300 MG, QW
     Route: 058

REACTIONS (3)
  - Asthmatic crisis [Unknown]
  - Asthma [Unknown]
  - Decreased immune responsiveness [Unknown]
